FAERS Safety Report 5732396-2 (Version None)
Quarter: 2008Q2

REPORT INFORMATION
  Report Type: 
  Country: None (occurrence: None)
  Receive Date: 20080508
  Receipt Date: 20080428
  Transmission Date: 20081010
  Serious: Yes (Congenital Anomaly, Other)
  Sender: FDA-Public Use
  Company Number: GB-ABBOTT-06P-167-0335144-00

PATIENT
  Sex: Female

DRUGS (1)
  1. VALPROATE SODIUM [Suspect]
     Indication: DRUG EXPOSURE DURING PREGNANCY
     Route: 064

REACTIONS (15)
  - ABNORMAL BEHAVIOUR [None]
  - AGGRESSION [None]
  - ARTHROPATHY [None]
  - COGNITIVE DISORDER [None]
  - DISTURBANCE IN SOCIAL BEHAVIOUR [None]
  - DRUG EXPOSURE DURING PREGNANCY [None]
  - DYSMORPHISM [None]
  - FOETAL ANTICONVULSANT SYNDROME [None]
  - FOOT DEFORMITY [None]
  - GRAND MAL CONVULSION [None]
  - LEARNING DISABILITY [None]
  - LIGAMENT LAXITY [None]
  - LIP DISORDER [None]
  - PETIT MAL EPILEPSY [None]
  - SPEECH DISORDER DEVELOPMENTAL [None]
